FAERS Safety Report 24555054 (Version 1)
Quarter: 2024Q4

REPORT INFORMATION
  Report Type: Spontaneous
  Country: AU (occurrence: AU)
  Receive Date: 20241028
  Receipt Date: 20241028
  Transmission Date: 20250115
  Serious: Yes (Life-Threatening, Hospitalization)
  Sender: MACLEODS
  Company Number: AU-MACLEODS PHARMA-MAC2024050035

PATIENT

DRUGS (2)
  1. NIACIN [Suspect]
     Active Substance: NIACIN
     Indication: Generalised anxiety disorder
     Dosage: TWO OR THREE 500 MG TABLETS PER DAY OF NIACIN FOR ROUGHLY TWO MONTH
     Route: 065
  2. NIACIN [Suspect]
     Active Substance: NIACIN
     Indication: Depression
     Dosage: TO CONTROL PANIC ATTACKS
     Route: 065

REACTIONS (6)
  - Acute hepatic failure [Recovered/Resolved]
  - Multiple organ dysfunction syndrome [Recovered/Resolved]
  - Necrosis [Unknown]
  - Immune system disorder [Recovered/Resolved]
  - Coagulopathy [Recovered/Resolved]
  - Overdose [Unknown]
